FAERS Safety Report 5286453-8 (Version None)
Quarter: 2007Q2

REPORT INFORMATION
  Report Type: 
  Country: None (occurrence: None)
  Receive Date: 20070404
  Receipt Date: 20070328
  Transmission Date: 20071010
  Serious: Yes (Other)
  Sender: FDA-Public Use
  Company Number: JP-JNJFOC-20070400307

PATIENT
  Age: 2 Year
  Sex: Male

DRUGS (6)
  1. ITRACONAZOLE [Suspect]
     Indication: FUNGAL INFECTION
     Route: 048
  2. ITRACONAZOLE [Suspect]
     Route: 048
  3. ONCOVIN [Concomitant]
     Indication: BRAIN NEOPLASM
     Route: 065
  4. VEPSID [Concomitant]
     Indication: BRAIN NEOPLASM
     Route: 065
  5. ENDOXAN [Concomitant]
     Indication: BRAIN NEOPLASM
     Route: 065
  6. CISPLATIN [Concomitant]
     Indication: BRAIN NEOPLASM
     Route: 065

REACTIONS (5)
  - BONE MARROW FAILURE [None]
  - DEPRESSED LEVEL OF CONSCIOUSNESS [None]
  - FEBRILE NEUTROPENIA [None]
  - INAPPROPRIATE ANTIDIURETIC HORMONE SECRETION [None]
  - NEUROPATHY PERIPHERAL [None]
